FAERS Safety Report 4688245-7 (Version None)
Quarter: 2005Q2

REPORT INFORMATION
  Report Type: 
  Country: None (occurrence: None)
  Receive Date: 20050609
  Receipt Date: 20050528
  Transmission Date: 20051028
  Serious: Yes (Disabling, Other)
  Sender: FDA-Public Use
  Company Number: 2005044792

PATIENT
  Age: 45 Year
  Sex: Female

DRUGS (16)
  1. NEURONTIN [Suspect]
     Indication: CARPAL TUNNEL SYNDROME
     Dosage: 600 MG (200 MG, 3 IN 1 D), ORAL
     Route: 048
     Dates: start: 20030101
  2. NEURONTIN [Suspect]
     Indication: HYPOAESTHESIA
     Dosage: 600 MG (200 MG, 3 IN 1 D), ORAL
     Route: 048
     Dates: start: 20030101
  3. NEURONTIN [Suspect]
     Indication: NEUROPATHY
     Dosage: 600 MG (200 MG, 3 IN 1 D), ORAL
     Route: 048
     Dates: start: 20030101
  4. NEURONTIN [Suspect]
     Indication: PARAESTHESIA
     Dosage: 600 MG (200 MG, 3 IN 1 D), ORAL
     Route: 048
     Dates: start: 20030101
  5. NEURONTIN [Suspect]
     Indication: SCIATICA
     Dosage: 600 MG (200 MG, 3 IN 1 D), ORAL
     Route: 048
     Dates: start: 20030101
  6. MORPHINE SULFATE [Suspect]
     Indication: FIBROMYALGIA
     Dosage: 60 MG, ORAL
     Route: 048
     Dates: start: 20040501
  7. OXYCONTIN [Suspect]
     Indication: ILL-DEFINED DISORDER
  8. GABAPENTIN [Suspect]
     Indication: ILL-DEFINED DISORDER
     Dosage: ORAL
     Route: 048
  9. ZANAFLEX [Concomitant]
  10. LORTAB [Concomitant]
  11. ZOLOFT [Concomitant]
  12. ATENOLOL [Concomitant]
  13. FLONASE [Concomitant]
  14. ALLEGRA-D [Concomitant]
  15. MOBIC [Concomitant]
  16. SOMA [Concomitant]

REACTIONS (16)
  - ACCIDENT [None]
  - BALANCE DISORDER [None]
  - CHEST PAIN [None]
  - DISORIENTATION [None]
  - DRUG INEFFECTIVE [None]
  - FATIGUE [None]
  - FEBRILE NEUTROPENIA [None]
  - FEELING ABNORMAL [None]
  - FIBROMYALGIA [None]
  - HEART RATE INCREASED [None]
  - HYPERSENSITIVITY [None]
  - INTERVERTEBRAL DISC PROTRUSION [None]
  - LOSS OF CONSCIOUSNESS [None]
  - MENTAL STATUS CHANGES [None]
  - PHARMACEUTICAL PRODUCT COMPLAINT [None]
  - RESPIRATORY DISTRESS [None]
